FAERS Safety Report 6569839-0 (Version None)
Quarter: 2010Q1

REPORT INFORMATION
  Report Type: 
  Country: None (occurrence: None)
  Receive Date: 20100204
  Receipt Date: 20100105
  Transmission Date: 20100710
  Serious: No
  Sender: FDA-Public Use
  Company Number: US-BAYER-201010599BCC

PATIENT
  Age: 60 Year
  Sex: Female
  Weight: 100 kg

DRUGS (6)
  1. ALEVE (CAPLET) [Suspect]
     Indication: ARTHRALGIA
     Dosage: TOTAL DAILY DOSE: 440 MG  UNIT DOSE: 220 MG
     Dates: start: 20091230, end: 20100104
  2. AVANDARYL [Concomitant]
     Route: 065
  3. GLUCOPHAGE [Concomitant]
     Route: 065
  4. ZESTORETIC [Concomitant]
     Route: 065
  5. ADVIL [Concomitant]
     Route: 065
  6. UNKNOWN DRUG [Concomitant]
     Indication: ARTHRALGIA
     Route: 065

REACTIONS (4)
  - ABDOMINAL DISCOMFORT [None]
  - DYSPNOEA [None]
  - FEELING HOT [None]
  - INSOMNIA [None]
